FAERS Safety Report 9835454 (Version 1)
Quarter: 2014Q1

REPORT INFORMATION
  Report Type: Spontaneous
  Country: US (occurrence: US)
  Receive Date: 20140122
  Receipt Date: 20140122
  Transmission Date: 20141002
  Serious: No
  Sender: FDA-Public Use
  Company Number: US-BRISTOL-MYERS SQUIBB COMPANY-19625276

PATIENT
  Age: 66 Year
  Sex: Male
  Weight: 120.18 kg

DRUGS (1)
  1. ELIQUIS [Suspect]
     Indication: ATRIAL FIBRILLATION
     Dosage: 2.5MG TWICE DAILY

REACTIONS (2)
  - Drug dose omission [Unknown]
  - Drug administration error [Unknown]
